FAERS Safety Report 7434100-9 (Version None)
Quarter: 2011Q2

REPORT INFORMATION
  Report Type: 
  Country: None (occurrence: None)
  Receive Date: 20110421
  Receipt Date: 20110421
  Transmission Date: 20111010
  Serious: Yes (Other)
  Sender: FDA-Public Use
  Company Number: None

PATIENT
  Sex: Female
  Weight: 52.6173 kg

DRUGS (1)
  1. HALOPERIDOL [Suspect]
     Indication: AGITATION

REACTIONS (2)
  - TONGUE DISORDER [None]
  - DYSPHAGIA [None]
